FAERS Safety Report 23800399 (Version 24)
Quarter: 2025Q2

REPORT INFORMATION
  Report Type: Report from Study
  Country: MX (occurrence: MX)
  Receive Date: 20240430
  Receipt Date: 20250611
  Transmission Date: 20250717
  Serious: Yes (Hospitalization, Disabling, Other)
  Sender: TAKEDA
  Company Number: MX-TAKEDA-2022TUS059866

PATIENT
  Age: 19 Year
  Sex: Male

DRUGS (9)
  1. ICATIBANT [Suspect]
     Active Substance: ICATIBANT ACETATE
     Indication: Hereditary angioedema
  2. ICATIBANT [Suspect]
     Active Substance: ICATIBANT ACETATE
  3. ICATIBANT [Suspect]
     Active Substance: ICATIBANT ACETATE
  4. ICATIBANT [Suspect]
     Active Substance: ICATIBANT ACETATE
  5. ICATIBANT [Suspect]
     Active Substance: ICATIBANT ACETATE
  6. ICATIBANT [Suspect]
     Active Substance: ICATIBANT ACETATE
  7. ICATIBANT [Suspect]
     Active Substance: ICATIBANT ACETATE
  8. ICATIBANT [Suspect]
     Active Substance: ICATIBANT ACETATE
  9. ICATIBANT [Suspect]
     Active Substance: ICATIBANT ACETATE

REACTIONS (27)
  - Appendicitis [Unknown]
  - Back injury [Recovering/Resolving]
  - Appendicitis perforated [Recovered/Resolved]
  - Accident at work [Recovering/Resolving]
  - Peritonitis [Recovering/Resolving]
  - Faecaloma [Recovering/Resolving]
  - Administration site pain [Recovering/Resolving]
  - Anxiety [Unknown]
  - Drug ineffective [Not Recovered/Not Resolved]
  - Contusion [Recovered/Resolved]
  - Inflammation [Recovering/Resolving]
  - Nervousness [Unknown]
  - Blood pressure decreased [Unknown]
  - Injury [Unknown]
  - Product prescribing error [Unknown]
  - Wound [Unknown]
  - Fear [Unknown]
  - Prescription drug used without a prescription [Unknown]
  - Social problem [Unknown]
  - Stress [Unknown]
  - Tremor [Not Recovered/Not Resolved]
  - Product use issue [Unknown]
  - Asthma [Not Recovered/Not Resolved]
  - Gastrointestinal inflammation [Recovering/Resolving]
  - Chest pain [Not Recovered/Not Resolved]
  - Dizziness [Not Recovered/Not Resolved]
  - Pyrexia [Not Recovered/Not Resolved]

NARRATIVE: CASE EVENT DATE: 20240622
